FAERS Safety Report 4952292-8 (Version None)
Quarter: 2006Q1

REPORT INFORMATION
  Report Type: 
  Country: None (occurrence: None)
  Receive Date: 20060323
  Receipt Date: 20060214
  Transmission Date: 20060701
  Serious: Yes (Hospitalization)
  Sender: FDA-Public Use
  Company Number: ZA-AVENTIS-200611465GDDC

PATIENT
  Age: 59 Year
  Sex: Male
  Weight: 91 kg

DRUGS (7)
  1. LANTUS [Suspect]
     Indication: DIABETES MELLITUS NON-INSULIN-DEPENDENT
     Route: 058
     Dates: start: 20050901
  2. CO-DIOVAN [Concomitant]
     Indication: HYPERTENSION
     Route: 048
     Dates: start: 19990101
  3. PLENDIL [Concomitant]
     Indication: HYPERTENSION
     Route: 048
     Dates: start: 20000101
  4. ZOCOR [Concomitant]
     Indication: HYPERCHOLESTEROLAEMIA
     Route: 048
     Dates: start: 19990101
  5. ECOTRIN [Concomitant]
     Route: 048
     Dates: start: 19990101
  6. ZYLOPRIM [Concomitant]
     Indication: HYPERURICAEMIA
     Route: 048
     Dates: start: 19990101
  7. PLAVIX [Concomitant]
     Dosage: DOSE: UNK

REACTIONS (2)
  - ANAEMIA [None]
  - PYREXIA [None]
